FAERS Safety Report 22991829 (Version 2)
Quarter: 2024Q2

REPORT INFORMATION
  Report Type: Spontaneous
  Country: US (occurrence: US)
  Receive Date: 20230927
  Receipt Date: 20240502
  Transmission Date: 20240716
  Serious: Yes (Other)
  Sender: FDA-Public Use
  Company Number: US-UCBSA-2023038108

PATIENT
  Sex: Female
  Weight: 69 kg

DRUGS (1)
  1. CIMZIA [Suspect]
     Active Substance: CERTOLIZUMAB PEGOL
     Indication: Psoriasis
     Dosage: UNK, EV 2 WEEKS(QOW)
     Route: 058
     Dates: start: 20230509, end: 202307

REACTIONS (4)
  - Cellulitis [Unknown]
  - Abscess limb [Recovered/Resolved]
  - Conjunctivitis [Recovered/Resolved]
  - Infection [Unknown]

NARRATIVE: CASE EVENT DATE: 20230101
